FAERS Safety Report 13071546 (Version 1)
Quarter: 2016Q4

REPORT INFORMATION
  Report Type: Spontaneous
  Country: US (occurrence: US)
  Receive Date: 20161228
  Receipt Date: 20161228
  Transmission Date: 20170207
  Serious: Yes (Other)
  Sender: FDA-Public Use
  Company Number: None

PATIENT
  Age: 43 Year
  Sex: Female

DRUGS (1)
  1. ENBREL [Suspect]
     Active Substance: ETANERCEPT
     Indication: RHEUMATOID ARTHRITIS
     Dosage: 50MG/1ML
     Route: 058
     Dates: start: 201610

REACTIONS (4)
  - Sinusitis [None]
  - Mood altered [None]
  - Bronchitis [None]
  - Depression [None]

NARRATIVE: CASE EVENT DATE: 20161228
